FAERS Safety Report 7813052-3 (Version None)
Quarter: 2011Q4

REPORT INFORMATION
  Report Type: 
  Country: None (occurrence: None)
  Receive Date: 20111013
  Receipt Date: 20111003
  Transmission Date: 20120403
  Serious: Yes (Hospitalization)
  Sender: FDA-Public Use
  Company Number: PHHO2011IT13668

PATIENT
  Sex: Male
  Weight: 80 kg

DRUGS (1)
  1. EVEROLIMUS [Suspect]
     Indication: HEART TRANSPLANT
     Dosage: 0.25 MG, UNK
     Route: 048
     Dates: start: 20110709, end: 20110726

REACTIONS (1)
  - HYPOALBUMINAEMIA [None]
